FAERS Safety Report 12503537 (Version 1)
Quarter: 2016Q2

REPORT INFORMATION
  Report Type: Spontaneous
  Country: GB (occurrence: GB)
  Receive Date: 20160628
  Receipt Date: 20160628
  Transmission Date: 20160815
  Serious: Yes (Death, Hospitalization)
  Sender: FDA-Public Use
  Company Number: GB-GLENMARK GENERICS (EUROPE) LTD.-2016GMK023397

PATIENT
  Age: 49 Year
  Sex: Male

DRUGS (2)
  1. VORICONAZOLE. [Suspect]
     Active Substance: VORICONAZOLE
     Indication: ASPERGILLUS INFECTION
     Dosage: UNK
     Route: 065
  2. ITRACONAZOLE. [Suspect]
     Active Substance: ITRACONAZOLE
     Indication: ASPERGILLOMA
     Dosage: UNK
     Route: 065

REACTIONS (9)
  - Bronchopulmonary aspergillosis [Fatal]
  - Aspergillus infection [Fatal]
  - Drug ineffective [Fatal]
  - Condition aggravated [Fatal]
  - Cerebral aspergillosis [Fatal]
  - Brain herniation [Unknown]
  - Acute myocardial infarction [Unknown]
  - Brain oedema [Unknown]
  - Multiple organ dysfunction syndrome [Fatal]
